FAERS Safety Report 8137882-6 (Version None)
Quarter: 2012Q1

REPORT INFORMATION
  Report Type: 
  Country: None (occurrence: None)
  Receive Date: 20120215
  Receipt Date: 20120208
  Transmission Date: 20120608
  Serious: Yes (Hospitalization)
  Sender: FDA-Public Use
  Company Number: US-BAYER-2011-045227

PATIENT
  Age: 36 Year
  Sex: Female
  Weight: 107.94 kg

DRUGS (4)
  1. YAZ [Suspect]
     Dosage: UNK
     Dates: start: 20070115, end: 20070517
  2. YASMIN [Suspect]
     Dosage: UNK
     Dates: start: 20031201, end: 20050301
  3. GEODON [Concomitant]
     Indication: DEPRESSION
     Dosage: UNK
     Dates: start: 20070201, end: 20110801
  4. CYMBALTA [Concomitant]
     Indication: DEPRESSION
     Dosage: UNK
     Dates: start: 20070201, end: 20090101

REACTIONS (14)
  - AMNESIA [None]
  - GENERAL PHYSICAL HEALTH DETERIORATION [None]
  - PARAESTHESIA [None]
  - FACIAL PARESIS [None]
  - DYSARTHRIA [None]
  - MUSCULAR WEAKNESS [None]
  - PAIN [None]
  - EMOTIONAL DISTRESS [None]
  - ANXIETY [None]
  - CEREBROVASCULAR ACCIDENT [None]
  - HYPOAESTHESIA [None]
  - MEMORY IMPAIRMENT [None]
  - CONFUSIONAL STATE [None]
  - FEAR OF DISEASE [None]
